FAERS Safety Report 17160992 (Version 3)
Quarter: 2020Q4

REPORT INFORMATION
  Report Type: Spontaneous
  Country: US (occurrence: US)
  Receive Date: 20191216
  Receipt Date: 20201221
  Transmission Date: 20210113
  Serious: Yes (Other)
  Sender: FDA-Public Use
  Company Number: NVSC2019US002931

PATIENT
  Sex: Male

DRUGS (3)
  1. GLEEVEC [Suspect]
     Active Substance: IMATINIB MESYLATE
     Indication: PRODUCT USED FOR UNKNOWN INDICATION
     Dosage: 400 MG
     Route: 065
  2. GLEEVEC [Suspect]
     Active Substance: IMATINIB MESYLATE
     Dosage: UNK
     Route: 065
  3. OXYCODONE [Concomitant]
     Active Substance: OXYCODONE
     Indication: PRODUCT USED FOR UNKNOWN INDICATION
     Dosage: UNK
     Route: 065

REACTIONS (10)
  - Internal haemorrhage [Unknown]
  - Spleen disorder [Unknown]
  - Asthenia [Unknown]
  - Cartilage injury [Unknown]
  - Product dose omission issue [Unknown]
  - Product physical issue [Unknown]
  - Product quality issue [Unknown]
  - Product coating issue [Unknown]
  - Product packaging issue [Unknown]
  - Haematochezia [Unknown]
